FAERS Safety Report 18108911 (Version 2)
Quarter: 2020Q3

REPORT INFORMATION
  Report Type: Spontaneous
  Country: US (occurrence: US)
  Receive Date: 20200804
  Receipt Date: 20200831
  Transmission Date: 20201103
  Serious: No
  Sender: FDA-Public Use
  Company Number: US-PFIZER INC-2020291480

PATIENT
  Age: 64 Year
  Sex: Female

DRUGS (2)
  1. IBRANCE [Suspect]
     Active Substance: PALBOCICLIB
     Dosage: 125 MG, CYCLIC (DAILY ON DAYS 1?21 OF EACH 28?DAY CYCLE)
     Route: 048
     Dates: start: 20200707
  2. IBRANCE [Suspect]
     Active Substance: PALBOCICLIB
     Indication: BREAST CANCER FEMALE
     Dosage: 125 MG, CYCLIC(IN THE LAST 28 DAYS)
     Dates: start: 20200705, end: 202007

REACTIONS (2)
  - Constipation [Unknown]
  - Dysgeusia [Unknown]

NARRATIVE: CASE EVENT DATE: 2020
